FAERS Safety Report 23350730 (Version 1)
Quarter: 2023Q4

REPORT INFORMATION
  Report Type: Spontaneous
  Country: US (occurrence: None)
  Receive Date: 20231228
  Receipt Date: 20231228
  Transmission Date: 20240110
  Serious: No
  Sender: FDA-Public Use
  Company Number: None

PATIENT
  Sex: Male

DRUGS (1)
  1. LENALIDOMIDE [Suspect]
     Active Substance: LENALIDOMIDE
     Indication: Plasma cell myeloma
     Dosage: OTHER FREQUENCY : 21/28;?
     Route: 048
     Dates: start: 20230328

REACTIONS (5)
  - Lymphadenopathy [None]
  - Stomatitis [None]
  - Headache [None]
  - Pyrexia [None]
  - Ear pain [None]
